FAERS Safety Report 4783116-X (Version None)
Quarter: 2005Q3

REPORT INFORMATION
  Report Type: 
  Country: None (occurrence: None)
  Receive Date: 20050914
  Receipt Date: 20040929
  Transmission Date: 20060218
  Serious: Yes (Death, Hospitalization)
  Sender: FDA-Public Use
  Company Number: 163-20785-04040006

PATIENT
  Age: 53 Year
  Sex: Male
  Weight: 92.5 kg

DRUGS (9)
  1. THALOMID [Suspect]
     Indication: GLIOBLASTOMA MULTIFORME
     Dosage: 400 MILLIGRAMS, QHS; ONCE PER WEEK X 4 WEEKS, ORAL
     Route: 048
     Dates: start: 20040218, end: 20040406
  2. THALOMID [Suspect]
     Indication: GLIOBLASTOMA MULTIFORME
     Dosage: 400 MILLIGRAMS, QHS; ONCE PER WEEK X 4 WEEKS, ORAL
     Route: 048
     Dates: start: 20040407, end: 20040701
  3. CPT-II (IRINOTECAN) (UNKNOWN) [Suspect]
     Indication: GLIOBLASTOMA MULTIFORME
     Dosage: 125 MG/M2, EVERY WKK X 4 WKS WITH 2 WKS REST PERIOD, INTRAVENOUS
     Route: 042
     Dates: start: 20040224, end: 20040316
  4. LEXAPRO [Concomitant]
  5. KLONOPIN [Concomitant]
  6. LIPITOR [Concomitant]
  7. DILANTIN [Concomitant]
  8. PEPCID [Concomitant]
  9. DEPAKOTE [Concomitant]

REACTIONS (3)
  - DEATH [None]
  - DEHYDRATION [None]
  - DISEASE PROGRESSION [None]
